FAERS Safety Report 7012897-X (Version None)
Quarter: 2010Q3

REPORT INFORMATION
  Report Type: 
  Country: None (occurrence: None)
  Receive Date: 20100922
  Receipt Date: 20100909
  Transmission Date: 20110219
  Serious: Yes (Death)
  Sender: FDA-Public Use
  Company Number: 1000016294

PATIENT
  Age: 78 Year
  Sex: Female

DRUGS (6)
  1. MEMANTINE [Suspect]
     Indication: DEMENTIA ALZHEIMER'S TYPE
     Dosage: 20 MG (10 MG, 2 IN 1 D), ORAL
     Route: 048
     Dates: start: 20090909, end: 20091201
  2. ESCITALOPRAM [Suspect]
     Indication: MAJOR DEPRESSION
     Dosage: 10 MG (10 MG, 1 IN 1 D)
     Dates: end: 20091201
  3. AMISULPRIDE (AMISULPRIDE) [Concomitant]
  4. TRAVOPROST (TRAVOPROST) (TRAVOPROST) [Concomitant]
  5. DORZOLAMIDE/TIMOLOL (DORZOLAMIDE, TIMOLOL) (DORZOLAMIDE, TIMOLOL) [Concomitant]
  6. BRINZOLAMIDE (BRINZOLAMIDE) (BRINZOLAMIDE) [Concomitant]

REACTIONS (1)
  - DEATH [None]
